FAERS Safety Report 8290364-3 (Version None)
Quarter: 2012Q2

REPORT INFORMATION
  Report Type: 
  Country: None (occurrence: None)
  Receive Date: 20120413
  Receipt Date: 20120413
  Transmission Date: 20120825
  Serious: No
  Sender: FDA-Public Use
  Company Number: None

PATIENT
  Sex: Male
  Weight: 158.759 kg

DRUGS (2)
  1. FENTANYL [Suspect]
  2. FENTANYL [Suspect]
     Indication: MUSCULOSKELETAL PAIN
     Dosage: 25MCG Q72 TOPICAL PATCH
     Route: 061
     Dates: start: 20120101

REACTIONS (2)
  - DRUG INEFFECTIVE [None]
  - PRODUCT ADHESION ISSUE [None]
